FAERS Safety Report 6849999-4 (Version None)
Quarter: 2010Q3

REPORT INFORMATION
  Report Type: 
  Country: None (occurrence: None)
  Receive Date: 20100716
  Receipt Date: 20071011
  Transmission Date: 20110219
  Serious: No
  Sender: FDA-Public Use
  Company Number: US-PFIZER INC-2007085660

PATIENT
  Sex: Female

DRUGS (2)
  1. CHANTIX [Suspect]
     Indication: SMOKING CESSATION THERAPY
     Dates: start: 20071004
  2. METHIMAZOLE [Concomitant]
     Indication: HYPERTHYROIDISM

REACTIONS (2)
  - DIZZINESS [None]
  - NAUSEA [None]
